FAERS Safety Report 10175087 (Version 1)
Quarter: 2014Q2

REPORT INFORMATION
  Report Type: Spontaneous
  Country: JP (occurrence: JP)
  Receive Date: 20140515
  Receipt Date: 20140515
  Transmission Date: 20141212
  Serious: Yes (Other)
  Sender: FDA-Public Use
  Company Number: JP-WATSON-2014-10274

PATIENT
  Age: 60 Year
  Sex: Male

DRUGS (4)
  1. PREDNISOLONE (UNKNOWN) [Suspect]
     Indication: DRUG REACTION WITH EOSINOPHILIA AND SYSTEMIC SYMPTOMS
     Dosage: 60 MG, UNKNOWN
     Route: 042
  2. PEGINTERFERON ALFA-2B [Concomitant]
     Indication: HEPATITIS C
     Dosage: 100 ?G, UNKNOWN
     Route: 065
     Dates: start: 201201
  3. RIBAVIRIN [Concomitant]
     Indication: HEPATITIS C
     Dosage: 800 MG, UNKNOWN
     Route: 065
     Dates: start: 201201
  4. TELAPREVIR [Concomitant]
     Indication: HEPATITIS C
     Dosage: 2250 MG, UNKNOWN; REDUCED TO 750MG
     Route: 065
     Dates: start: 201201

REACTIONS (1)
  - Hepatitis B [Recovered/Resolved]
